FAERS Safety Report 5834450-3 (Version None)
Quarter: 2008Q3

REPORT INFORMATION
  Report Type: 
  Country: None (occurrence: None)
  Receive Date: 20080805
  Receipt Date: 20080710
  Transmission Date: 20090109
  Serious: No
  Sender: FDA-Public Use
  Company Number: US-BOEHRINGER INGELHEIM GMBH, GERMANY-2008-BP-09470BP

PATIENT
  Age: 73 Year
  Sex: Female

DRUGS (13)
  1. SPIRIVA [Suspect]
     Indication: CHRONIC OBSTRUCTIVE PULMONARY DISEASE
     Route: 055
     Dates: start: 20050101
  2. VERAPAMIL [Concomitant]
  3. PROPRANOLOL [Concomitant]
  4. PREMARIN [Concomitant]
  5. FLUOXETINE [Concomitant]
  6. PREVACID [Concomitant]
  7. FUROSEMIDE [Concomitant]
  8. COZAAR [Concomitant]
  9. ADVAIR DISKUS 100/50 [Concomitant]
     Route: 055
  10. VAGIFEM [Concomitant]
  11. XALATAN [Concomitant]
     Indication: GLAUCOMA
     Route: 031
  12. LUMIGAN [Concomitant]
     Indication: GLAUCOMA
     Route: 031
  13. FLUTICISONE NASAL SPRAY [Concomitant]
     Route: 045

REACTIONS (1)
  - WHEEZING [None]
